FAERS Safety Report 4625765-5 (Version None)
Quarter: 2005Q1

REPORT INFORMATION
  Report Type: 
  Country: None (occurrence: None)
  Receive Date: 20050330
  Receipt Date: 20050311
  Transmission Date: 20050727
  Serious: Yes (Hospitalization)
  Sender: FDA-Public Use
  Company Number: DE_050315472

PATIENT
  Age: 69 Year
  Sex: Female

DRUGS (5)
  1. ZYPREXA [Suspect]
     Indication: SCHIZOPHRENIA, PARANOID TYPE
     Dosage: 30 MG DAY
     Dates: start: 20040401
  2. TEGRETAL (CARBAMAZEPINE RIVOPHARM) [Concomitant]
  3. DIPIPERON (PIPAMPERONE HYDROCHLORIDE) [Concomitant]
  4. ENALAPRIL MALEATE [Concomitant]
  5. ASS 100 ^CT-ARZNEIMITTEL^ (ACETYLSALICYLIC ACID) [Concomitant]

REACTIONS (3)
  - ANAEMIA [None]
  - BONE MARROW DEPRESSION [None]
  - PRESCRIBED OVERDOSE [None]
